FAERS Safety Report 26186034 (Version 1)
Quarter: 2025Q4

REPORT INFORMATION
  Report Type: Spontaneous
  Country: US (occurrence: None)
  Receive Date: 20251220
  Receipt Date: 20251220
  Transmission Date: 20260118
  Serious: Yes (Life-Threatening, Hospitalization)
  Sender: FDA-CTU
  Company Number: None

PATIENT
  Age: 65 Year
  Sex: Male
  Weight: 180 kg

DRUGS (2)
  1. SPIRONOLACTONE [Suspect]
     Active Substance: SPIRONOLACTONE
     Indication: Cardiac disorder
     Dates: start: 20251201, end: 20251207
  2. DEVICE [Concomitant]
     Active Substance: DEVICE

REACTIONS (5)
  - Renal failure [None]
  - Sepsis [None]
  - Headache [None]
  - Diarrhoea [None]
  - Muscular weakness [None]

NARRATIVE: CASE EVENT DATE: 20251216
